FAERS Safety Report 11064163 (Version 1)
Quarter: 2015Q2

REPORT INFORMATION
  Report Type: Report from Study
  Country: CO (occurrence: CO)
  Receive Date: 20150424
  Receipt Date: 20150424
  Transmission Date: 20150821
  Serious: Yes (Death)
  Sender: FDA-Public Use
  Company Number: CO-ABBVIE-15P-036-1380229-00

PATIENT
  Age: 60 Year
  Sex: Female
  Weight: 37 kg

DRUGS (1)
  1. ZEMPLAR [Suspect]
     Active Substance: PARICALCITOL
     Indication: HYPERPARATHYROIDISM SECONDARY
     Dosage: POST-DIALYSIS
     Route: 042
     Dates: start: 20121219, end: 20150302

REACTIONS (7)
  - Asthmatic crisis [Fatal]
  - Generalised oedema [Fatal]
  - Respiratory distress [Fatal]
  - Pneumonia [Fatal]
  - Dyspnoea [Fatal]
  - Blood pressure increased [Fatal]
  - Cardio-respiratory arrest [Fatal]

NARRATIVE: CASE EVENT DATE: 20150219
